FAERS Safety Report 5608515-5 (Version None)
Quarter: 2008Q1

REPORT INFORMATION
  Report Type: 
  Country: None (occurrence: None)
  Receive Date: 20080125
  Receipt Date: 20080116
  Transmission Date: 20080703
  Serious: Yes (Other)
  Sender: FDA-Public Use
  Company Number: 18210

PATIENT
  Age: 56 Year
  Sex: Male

DRUGS (27)
  1. VINCRISTINE [Suspect]
     Indication: B-CELL LYMPHOMA STAGE IV
  2. VINCRISTINE [Suspect]
     Indication: B-LYMPHOCYTE COUNT INCREASED
  3. VINCRISTINE [Suspect]
     Indication: LYMPHOMA
  4. VINCRISTINE [Suspect]
     Indication: B-CELL LYMPHOMA STAGE IV
  5. VINCRISTINE [Suspect]
     Indication: B-LYMPHOCYTE COUNT INCREASED
  6. VINCRISTINE [Suspect]
     Indication: LYMPHOMA
  7. VINCRISTINE [Suspect]
     Indication: LYMPHOMA
  8. VINCRISTINE [Suspect]
  9. DOXORUBICIN [Suspect]
  10. DOXORUBICIN [Suspect]
  11. DOXORUBICIN [Suspect]
  12. DOXORUBICIN [Suspect]
  13. ETOPOSIDE [Suspect]
  14. ETOPOSIDE [Suspect]
  15. ETOPOSIDE [Suspect]
  16. ETOPOSIDE [Suspect]
  17. CYCLOPHOSPHAMIDE [Suspect]
  18. CYCLOPHOSPHAMIDE [Suspect]
  19. CYCLOPHOSPHAMIDE [Suspect]
  20. CYCLOPHOSPHAMIDE [Suspect]
  21. PREDNISONE TAB [Suspect]
  22. PREDNISONE TAB [Suspect]
  23. PREDNISONE TAB [Suspect]
  24. PREDNISONE TAB [Suspect]
  25. RITUXIMAB [Suspect]
     Indication: DIFFUSE LARGE B-CELL LYMPHOMA
  26. RITUXIMAB [Suspect]
  27. FILGRASTIM [Concomitant]

REACTIONS (3)
  - CYTOGENETIC ABNORMALITY [None]
  - GRANULOCYTES ABNORMAL [None]
  - HAEMATOPOIETIC STEM CELL MOBILISATION [None]
